FAERS Safety Report 22113493 (Version 3)
Quarter: 2024Q4

REPORT INFORMATION
  Report Type: Spontaneous
  Country: VN (occurrence: VN)
  Receive Date: 20230320
  Receipt Date: 20241111
  Transmission Date: 20250115
  Serious: Yes (Death, Hospitalization)
  Sender: ROCHE
  Company Number: VN-ROCHE-3308148

PATIENT
  Age: 58 Year
  Sex: Female

DRUGS (1)
  1. KADCYLA [Suspect]
     Active Substance: ADO-TRASTUZUMAB EMTANSINE
     Indication: Breast cancer metastatic
     Route: 042
     Dates: start: 20230217

REACTIONS (4)
  - Death [Fatal]
  - Pericardial effusion [Unknown]
  - Neoplasm [Unknown]
  - Asthenia [Unknown]
